FAERS Safety Report 8111138-X (Version None)
Quarter: 2012Q1

REPORT INFORMATION
  Report Type: 
  Country: None (occurrence: None)
  Receive Date: 20120203
  Receipt Date: 20110513
  Transmission Date: 20120608
  Serious: No
  Sender: FDA-Public Use
  Company Number: US-GLAXOSMITHKLINE-A0927304A

PATIENT
  Age: 69 Year
  Sex: Female

DRUGS (5)
  1. OXYBUTYNIN [Concomitant]
  2. LAMICTAL [Suspect]
     Indication: DEPRESSION
     Dosage: 50MG PER DAY
     Route: 048
     Dates: start: 20110412
  3. SIMVASTATIN [Concomitant]
  4. ASPIRIN [Concomitant]
  5. ZOLPIDEM [Concomitant]

REACTIONS (1)
  - THERMAL BURN [None]
